FAERS Safety Report 7922664-8 (Version None)
Quarter: 2011Q4

REPORT INFORMATION
  Report Type: 
  Country: None (occurrence: None)
  Receive Date: 20111117
  Receipt Date: 20110310
  Transmission Date: 20120403
  Serious: No
  Sender: FDA-Public Use
  Company Number: US-ALLERGAN-1103410US

PATIENT
  Sex: Female

DRUGS (1)
  1. COMBIGAN [Suspect]
     Indication: BORDERLINE GLAUCOMA
     Dosage: 2 GTT, BID
     Route: 047
     Dates: start: 20110307, end: 20110317

REACTIONS (7)
  - DIZZINESS [None]
  - OCULAR HYPERAEMIA [None]
  - EYE INFLAMMATION [None]
  - EYE IRRITATION [None]
  - DYSPNOEA [None]
  - HEADACHE [None]
  - DRY EYE [None]
